FAERS Safety Report 6010480-6 (Version None)
Quarter: 2008Q4

REPORT INFORMATION
  Report Type: 
  Country: None (occurrence: None)
  Receive Date: 20081218
  Receipt Date: 20081212
  Transmission Date: 20090506
  Serious: Yes (Hospitalization)
  Sender: FDA-Public Use
  Company Number: US-BAYER-200839930NA

PATIENT
  Age: 32 Year
  Sex: Female
  Weight: 82 kg

DRUGS (4)
  1. MIRENA [Suspect]
     Indication: CONTRACEPTION
     Route: 015
     Dates: start: 20051212, end: 20081113
  2. WELLBUTRIN [Concomitant]
  3. LEVOXYL [Concomitant]
  4. CELEXA [Concomitant]

REACTIONS (2)
  - ABDOMINAL PAIN [None]
  - UTERINE RUPTURE [None]
